FAERS Safety Report 14609960 (Version 1)
Quarter: 2018Q1

REPORT INFORMATION
  Report Type: Spontaneous
  Country: US (occurrence: US)
  Receive Date: 20180307
  Receipt Date: 20180307
  Transmission Date: 20180509
  Serious: No
  Sender: FDA-Public Use
  Company Number: None

PATIENT
  Age: 68 Year
  Sex: Male
  Weight: 83.25 kg

DRUGS (13)
  1. CIALIS [Concomitant]
     Active Substance: TADALAFIL
  2. POTASSIUM [Concomitant]
     Active Substance: POTASSIUM
  3. HYDROCHLOROTHIAZIDE. [Concomitant]
     Active Substance: HYDROCHLOROTHIAZIDE
  4. RANITIDINE. [Concomitant]
     Active Substance: RANITIDINE
  5. CALCIUM/VITAMIN D [Concomitant]
     Active Substance: CALCIUM\VITAMIN D
  6. IRBESARTAN. [Concomitant]
     Active Substance: IRBESARTAN
  7. FISH OIL [Concomitant]
     Active Substance: FISH OIL
  8. MULTIVITAMIN [Concomitant]
     Active Substance: VITAMINS
  9. FLECAINIDE [Concomitant]
     Active Substance: FLECAINIDE
  10. VITAMIN D3 [Concomitant]
     Active Substance: CHOLECALCIFEROL
  11. VITAMIN C [Concomitant]
     Active Substance: ASCORBIC ACID
  12. METHYLPHENIDATE ER 36MG, SUBSTITUTE FOR CONCERTA 36MG [Suspect]
     Active Substance: METHYLPHENIDATE HYDROCHLORIDE
     Indication: ATTENTION DEFICIT/HYPERACTIVITY DISORDER
     Dosage: ?          QUANTITY:2 CAPSULE(S);?
     Route: 048
  13. AMLODIPINE [Concomitant]
     Active Substance: AMLODIPINE BESYLATE

REACTIONS (3)
  - Drug effect incomplete [None]
  - Drug effect delayed [None]
  - Product substitution issue [None]

NARRATIVE: CASE EVENT DATE: 20170317
